FAERS Safety Report 4608380-9 (Version None)
Quarter: 2005Q1

REPORT INFORMATION
  Report Type: 
  Country: None (occurrence: None)
  Receive Date: 20050311
  Receipt Date: 20050311
  Transmission Date: 20050727
  Serious: Yes (Other)
  Sender: FDA-Public Use
  Company Number: None

PATIENT
  Age: 43 Year
  Sex: Male
  Weight: 101.1521 kg

DRUGS (2)
  1. AVAPRO [Suspect]
     Indication: HYPERTENSION
     Dosage: 300MG PO DAILY
     Route: 048
     Dates: start: 20050127, end: 20050214
  2. LISINOPRIL [Concomitant]

REACTIONS (1)
  - ANGIONEUROTIC OEDEMA [None]
